FAERS Safety Report 6585303-7 (Version None)
Quarter: 2010Q1

REPORT INFORMATION
  Report Type: 
  Country: None (occurrence: None)
  Receive Date: 20100217
  Receipt Date: 20100205
  Transmission Date: 20100710
  Serious: Yes (Other)
  Sender: FDA-Public Use
  Company Number: US-JNJFOC-20100205340

PATIENT

DRUGS (4)
  1. REMICADE [Suspect]
     Indication: PSORIATIC ARTHROPATHY
     Dosage: UNKNOWN DOSE FOR APPROXIMATELY 3 YEARS
     Route: 042
  2. REMICADE [Suspect]
     Indication: PSORIASIS
     Dosage: UNKNOWN DOSE FOR APPROXIMATELY 3 YEARS
     Route: 042
  3. METHOTREXATE [Concomitant]
  4. PREDNISONE [Concomitant]

REACTIONS (3)
  - HISTOPLASMOSIS [None]
  - HYPERCALCAEMIA [None]
  - RENAL FAILURE [None]
